FAERS Safety Report 9242032 (Version 1)
Quarter: 2013Q2

REPORT INFORMATION
  Report Type: Spontaneous
  Country: FR (occurrence: FR)
  Receive Date: 20130419
  Receipt Date: 20130419
  Transmission Date: 20140414
  Serious: Yes (Hospitalization)
  Sender: FDA-Public Use
  Company Number: FR-TEVA-397807ISR

PATIENT
  Age: 59 Year
  Sex: Male

DRUGS (6)
  1. ANTADYS [Suspect]
     Indication: PAIN
     Route: 048
     Dates: start: 20130222, end: 201303
  2. FLEXEA 625 MG, TABLETS [Suspect]
     Indication: OSTEOARTHRITIS
     Dosage: 1250 MILLIGRAM DAILY;
     Route: 048
     Dates: start: 20120222, end: 20130309
  3. TRAVATAN [Concomitant]
  4. METFORMIN [Concomitant]
  5. METFORMIN [Concomitant]
  6. FENOFIBRATE [Concomitant]

REACTIONS (3)
  - Fixed eruption [Recovering/Resolving]
  - Arthralgia [Unknown]
  - Asthenia [Unknown]
